FAERS Safety Report 20108340 (Version 1)
Quarter: 2021Q4

REPORT INFORMATION
  Report Type: Spontaneous
  Country: US (occurrence: None)
  Receive Date: 20211123
  Receipt Date: 20211123
  Transmission Date: 20220303
  Serious: No
  Sender: FDA-Public Use
  Company Number: None

PATIENT
  Age: 73 Year
  Sex: Male
  Weight: 107.1 kg

DRUGS (12)
  1. ERLEADA [Suspect]
     Active Substance: APALUTAMIDE
     Indication: Prostate cancer
     Dosage: FREQUENCY : DAILY;?
     Route: 048
     Dates: start: 20210709
  2. ALFUZOSIN [Concomitant]
     Active Substance: ALFUZOSIN
  3. Aspirin EC 81mg [Concomitant]
  4. BACLOFEN [Concomitant]
     Active Substance: BACLOFEN
  5. Vitamin D3 50mcg [Concomitant]
  6. AVODART [Concomitant]
     Active Substance: DUTASTERIDE
  7. GABAPENTIN [Concomitant]
     Active Substance: GABAPENTIN
  8. ELIGARD [Concomitant]
     Active Substance: LEUPROLIDE ACETATE
  9. Metoprolol succinate ER 25mg [Concomitant]
  10. MORPHINE SULFATE [Concomitant]
     Active Substance: MORPHINE SULFATE
  11. VITAMINS [Concomitant]
     Active Substance: VITAMINS
  12. VITAMIN B COMPLEX [Concomitant]
     Active Substance: CYANOCOBALAMIN\DEXPANTHENOL\NIACINAMIDE\PYRIDOXINE HYDROCHLORIDE\RIBOFLAVIN 5^-PHOSPHATE SODIUM\THIA

REACTIONS (1)
  - Alopecia [None]

NARRATIVE: CASE EVENT DATE: 20211123
